FAERS Safety Report 6758524-8 (Version None)
Quarter: 2010Q2

REPORT INFORMATION
  Report Type: 
  Country: None (occurrence: None)
  Receive Date: 20100607
  Receipt Date: 20100527
  Transmission Date: 20101027
  Serious: Yes (Hospitalization)
  Sender: FDA-Public Use
  Company Number: B0655411A

PATIENT
  Age: 44 Year
  Sex: Male
  Weight: 43.04 kg

DRUGS (9)
  1. LAMOTRIGINE [Suspect]
     Indication: MOOD SWINGS
     Dosage: 50MG PER DAY
     Route: 048
     Dates: start: 20100427, end: 20100513
  2. CLOZAPINE [Concomitant]
  3. VALPROATE SODIUM [Concomitant]
  4. CITALOPRAM [Concomitant]
  5. AMISULPRIDE [Concomitant]
  6. SIMVASTATIN [Concomitant]
  7. HYOSCINE HBR HYT [Concomitant]
  8. SALBUTAMOL [Concomitant]
  9. COD LIVER OIL [Concomitant]

REACTIONS (9)
  - ADVERSE DRUG REACTION [None]
  - CONFUSIONAL STATE [None]
  - NEUROLEPTIC MALIGNANT SYNDROME [None]
  - PYREXIA [None]
  - RASH GENERALISED [None]
  - SOMNOLENCE [None]
  - SPUTUM DISCOLOURED [None]
  - TACHYCARDIA [None]
  - VOMITING [None]
